FAERS Safety Report 4843019-9 (Version None)
Quarter: 2005Q4

REPORT INFORMATION
  Report Type: 
  Country: None (occurrence: None)
  Receive Date: 20051201
  Receipt Date: 20051026
  Transmission Date: 20060501
  Serious: Yes (Hospitalization)
  Sender: FDA-Public Use
  Company Number: FR-ROCHE-422294

PATIENT
  Age: 38 Year
  Sex: Female

DRUGS (5)
  1. NICARDIPINE HCL [Suspect]
     Indication: TOCOLYSIS
     Route: 041
  2. NICARDIPINE HCL [Suspect]
     Route: 041
  3. NICARDIPINE HCL [Suspect]
     Route: 041
  4. SALBUTAMOL [Suspect]
     Indication: TOCOLYSIS
     Route: 041
  5. BETAMETHASONE [Suspect]
     Indication: DRUG USE FOR UNKNOWN INDICATION
     Route: 030

REACTIONS (8)
  - ACUTE PULMONARY OEDEMA [None]
  - CARDIAC MURMUR [None]
  - CHOLESTASIS OF PREGNANCY [None]
  - CREPITATIONS [None]
  - CYANOSIS [None]
  - DYSPNOEA [None]
  - HEART RATE INCREASED [None]
  - RESPIRATORY DISTRESS [None]
